FAERS Safety Report 21451224 (Version 3)
Quarter: 2022Q4

REPORT INFORMATION
  Report Type: Spontaneous
  Country: US (occurrence: US)
  Receive Date: 20221013
  Receipt Date: 20221201
  Transmission Date: 20230113
  Serious: No
  Sender: FDA-Public Use
  Company Number: US-PFIZER INC-202201176647

PATIENT
  Age: 9 Year
  Sex: Male
  Weight: 32.66 kg

DRUGS (2)
  1. GENOTROPIN [Suspect]
     Active Substance: SOMATROPIN
     Indication: Blood growth hormone decreased
     Dosage: 1.3 MG [1.3MG, SO HE ALTERNATES 1.2MG AND 1.4MG INJECTED NIGHTLY]
     Dates: start: 20220718
  2. GENOTROPIN [Suspect]
     Active Substance: SOMATROPIN
     Dosage: 1.4 MG [1.3MG, SO HE ALTERNATES 1.2MG AND 1.4MG INJECTED NIGHTLY]
     Dates: start: 20220718

REACTIONS (2)
  - Product dose omission issue [Unknown]
  - Device use error [Unknown]

NARRATIVE: CASE EVENT DATE: 20220101
